FAERS Safety Report 5623620-5 (Version None)
Quarter: 2008Q1

REPORT INFORMATION
  Report Type: 
  Country: None (occurrence: None)
  Receive Date: 20080212
  Receipt Date: 20080201
  Transmission Date: 20080703
  Serious: Yes (Hospitalization)
  Sender: FDA-Public Use
  Company Number: US-ELI_LILLY_AND_COMPANY-US200802000276

PATIENT
  Age: 50 Year
  Sex: Female

DRUGS (11)
  1. CYMBALTA [Suspect]
     Indication: ARTHRITIS
     Dosage: 1 D/F, UNK
  2. PLAVIX [Concomitant]
  3. LOPRESSOR [Concomitant]
  4. LISINOPRIL [Concomitant]
  5. LIPITOR [Concomitant]
  6. ASPIRIN [Concomitant]
     Dosage: 81 MG, UNK
  7. SYNTHROID [Concomitant]
  8. NITROGLYCERIN [Concomitant]
  9. FLEXERIL [Concomitant]
  10. RESTORIL [Concomitant]
     Indication: INSOMNIA
  11. VESICARE [Concomitant]
     Indication: URINARY INCONTINENCE

REACTIONS (3)
  - CHEST PAIN [None]
  - HEPATIC ENZYME INCREASED [None]
  - PNEUMONITIS [None]
